FAERS Safety Report 14074766 (Version 1)
Quarter: 2017Q4

REPORT INFORMATION
  Report Type: Spontaneous
  Country: US (occurrence: US)
  Receive Date: 20171011
  Receipt Date: 20171011
  Transmission Date: 20180321
  Serious: No
  Sender: FDA-Public Use
  Company Number: US-ABBVIE-17P-163-2039509-00

PATIENT
  Sex: Male

DRUGS (4)
  1. VENETOCLAX. [Suspect]
     Active Substance: VENETOCLAX
     Indication: ERYTHROLEUKAEMIA
     Dosage: WEEK 1
     Route: 048
     Dates: start: 201706, end: 201706
  2. VENETOCLAX. [Suspect]
     Active Substance: VENETOCLAX
     Dosage: WEEK 3
     Route: 048
     Dates: start: 201707, end: 20170712
  3. VENETOCLAX. [Suspect]
     Active Substance: VENETOCLAX
     Dosage: WEEK 2
     Route: 048
     Dates: start: 201707, end: 201707
  4. VENETOCLAX. [Suspect]
     Active Substance: VENETOCLAX
     Route: 048
     Dates: start: 20170713

REACTIONS (1)
  - Hepatic enzyme increased [Unknown]
